FAERS Safety Report 11645538 (Version 1)
Quarter: 2015Q4

REPORT INFORMATION
  Report Type: Spontaneous
  Country: ES (occurrence: ES)
  Receive Date: 20151020
  Receipt Date: 20151020
  Transmission Date: 20160304
  Serious: Yes (Other)
  Sender: FDA-Public Use
  Company Number: ES-JNJFOC-20151014546

PATIENT
  Age: 33 Year
  Sex: Female

DRUGS (3)
  1. SIMPONI [Suspect]
     Active Substance: GOLIMUMAB
     Indication: COLITIS ULCERATIVE
     Route: 058
     Dates: start: 201405
  2. 6-MP (MERCAPTOPURINE) [Concomitant]
     Active Substance: MERCAPTOPURINE ANHYDROUS
     Route: 048
  3. MESALAZINE [Concomitant]
     Active Substance: MESALAMINE
     Route: 048

REACTIONS (4)
  - Haematochezia [Unknown]
  - Headache [Recovered/Resolved]
  - Urinary tract infection [Recovered/Resolved]
  - Incorrect drug administration duration [Unknown]

NARRATIVE: CASE EVENT DATE: 2014
